FAERS Safety Report 9600068 (Version 1)
Quarter: 2013Q4

REPORT INFORMATION
  Report Type: Spontaneous
  Country: US (occurrence: US)
  Receive Date: 20131004
  Receipt Date: 20131004
  Transmission Date: 20140711
  Serious: No
  Sender: FDA-Public Use
  Company Number: US-AMGEN-USASP2013032350

PATIENT
  Age: 50 Year
  Sex: Female
  Weight: 107.48 kg

DRUGS (6)
  1. ENBREL [Suspect]
     Indication: PRODUCT USED FOR UNKNOWN INDICATION
     Dosage: 50 MG, 2 TIMES/WK
     Route: 058
  2. SAVELLA [Concomitant]
     Dosage: 50 MG, UNK
  3. VITAMIN D                          /00107901/ [Concomitant]
     Dosage: 400 UNIT, UNK
  4. ALEVE [Concomitant]
     Dosage: 220 MG, UNK
  5. BENADRYL                           /00000402/ [Concomitant]
     Dosage: 25 MG, UNK
  6. KRILL OMEGA RED OIL [Concomitant]
     Dosage: 300 MG, UNK

REACTIONS (1)
  - Injection site urticaria [Unknown]
